FAERS Safety Report 8682511 (Version 4)
Quarter: 2012Q4

REPORT INFORMATION
  Report Type: Report from Study
  Country: FR (occurrence: FR)
  Receive Date: 20120725
  Receipt Date: 20121122
  Transmission Date: 20130627
  Serious: Yes (Hospitalization)
  Sender: FDA-Public Use
  Company Number: FR-ROCHE-CID000000002080592

PATIENT
  Age: 69 Year
  Sex: Female

DRUGS (3)
  1. MYCOPHENOLATE MOFETIL [Suspect]
     Indication: TRANSPLANT REJECTION
     Route: 002
     Dates: start: 20120131
  2. EVEROLIMUS [Suspect]
     Indication: TRANSPLANT REJECTION
     Route: 002
     Dates: start: 20120205, end: 20120717
  3. PREDNISONE [Suspect]
     Indication: TRANSPLANT REJECTION
     Route: 002
     Dates: start: 20120201

REACTIONS (1)
  - Transplant rejection [Recovering/Resolving]
